FAERS Safety Report 11822266 (Version 2)
Quarter: 2016Q1

REPORT INFORMATION
  Report Type: Other
  Country: US (occurrence: US)
  Receive Date: 20151210
  Receipt Date: 20160118
  Transmission Date: 20160525
  Serious: Yes (Other)
  Sender: FDA-Public Use
  Company Number: US-SHIRE-US201515954

PATIENT
  Age: 60 Year
  Sex: Female

DRUGS (1)
  1. LIALDA [Suspect]
     Active Substance: MESALAMINE
     Indication: PRODUCT USED FOR UNKNOWN INDICATION
     Dosage: UNK, UNKNOWN
     Route: 048
     Dates: start: 2011

REACTIONS (5)
  - Diarrhoea [Unknown]
  - Drug dose omission [Unknown]
  - Condition aggravated [Unknown]
  - Haematochezia [Unknown]
  - Pain [Unknown]

NARRATIVE: CASE EVENT DATE: 2015
